FAERS Safety Report 17186822 (Version 1)
Quarter: 2019Q4

REPORT INFORMATION
  Report Type: Spontaneous
  Country: NL (occurrence: DE)
  Receive Date: 20191220
  Receipt Date: 20191220
  Transmission Date: 20200122
  Serious: Yes (Hospitalization)
  Sender: FDA-Public Use
  Company Number: DE-FRESENIUS KABI-FK201913983

PATIENT
  Age: 6 Decade
  Sex: Female
  Weight: 61 kg

DRUGS (31)
  1. CARBOPLATIN (MANUFACTURER UNKNOWN) [Suspect]
     Active Substance: CARBOPLATIN
     Indication: NON-SMALL CELL LUNG CANCER
     Dosage: 6 MG (6 MG, MIN/ML)
     Route: 041
     Dates: start: 20171101
  2. PACLITAXEL ALBUMIN [Suspect]
     Active Substance: PACLITAXEL
     Indication: NON-SMALL CELL LUNG CANCER
     Dosage: 100 MG/M2, UNK
     Route: 041
     Dates: start: 20180220, end: 20180227
  3. COLECALCIFEROL [Concomitant]
     Active Substance: CHOLECALCIFEROL
     Indication: VITAMIN D DEFICIENCY
  4. PIPERACILLIN SODIUM/TAZOBACTAM SODIUM [Concomitant]
     Active Substance: PIPERACILLIN SODIUM\TAZOBACTAM SODIUM
     Indication: PNEUMONIA
     Dosage: UNK
     Route: 048
     Dates: start: 20171026, end: 20171102
  5. PACLITAXEL ALBUMIN [Suspect]
     Active Substance: PACLITAXEL
     Dosage: UNK
     Route: 041
     Dates: start: 2018, end: 20180323
  6. PACLITAXEL ALBUMIN [Suspect]
     Active Substance: PACLITAXEL
     Dosage: 100 MG/M2, QD
     Route: 041
     Dates: start: 20171101, end: 20180227
  7. SODIUM [Concomitant]
     Active Substance: SODIUM
     Indication: PROPHYLAXIS
     Dosage: 1000 ML, UNK
     Route: 041
  8. METRONIDAZOLE BENZOATE [Concomitant]
     Active Substance: METRONIDAZOLE BENZOATE
     Indication: CLOSTRIDIUM DIFFICILE COLITIS
     Dosage: 1200 MG, QD
     Route: 048
     Dates: start: 20171117, end: 20171127
  9. LIPEGFILGRASTIM [Concomitant]
     Active Substance: LIPEGFILGRASTIM
     Indication: PROPHYLAXIS
     Dosage: UNK(1 APPLICATION)
     Route: 058
     Dates: start: 20180324
  10. PREGABALIN. [Concomitant]
     Active Substance: PREGABALIN
     Dosage: 150 MG, QD
     Route: 065
     Dates: start: 20180118, end: 20180323
  11. METOCLOPRAMIDE HYDROCHLORIDE. [Concomitant]
     Active Substance: METOCLOPRAMIDE HYDROCHLORIDE
     Indication: PNEUMONIA
     Dosage: UNK
     Route: 048
     Dates: start: 20171026, end: 20171027
  12. COLECALCIFEROL [Concomitant]
     Active Substance: CHOLECALCIFEROL
     Indication: VITAMIN D DEFICIENCY
     Dosage: 2000 IU (INTERNATIONAL UNIT)
     Route: 048
     Dates: start: 20171023
  13. AMIKACIN SULFATE. [Concomitant]
     Active Substance: AMIKACIN SULFATE
     Indication: PNEUMONIA
     Dosage: 30 GTT
     Route: 048
     Dates: start: 20171024, end: 20171027
  14. POTASSIUM [Concomitant]
     Active Substance: POTASSIUM
     Indication: HYPOKALAEMIA
     Dosage: 1 OT, QD (1 UNKNOWN)
     Route: 048
     Dates: start: 20180131, end: 20180201
  15. RED BLOOD CELLS [Concomitant]
     Active Substance: HUMAN RED BLOOD CELL
     Indication: ANAEMIA
     Dosage: 2 OT, QD
     Route: 041
     Dates: start: 20180131, end: 20180131
  16. BISOPROLOL [Concomitant]
     Active Substance: BISOPROLOL
     Indication: SUPRAVENTRICULAR TACHYCARDIA
     Dosage: 2.5 MG, QD
     Route: 048
  17. CAFFEINE/PARACETAMOL/PROPYPHENAZONE [Concomitant]
     Active Substance: ACETAMINOPHEN\CAFFEINE\PROPYPHENAZONE
     Dosage: 40 GTT, UNK
     Route: 048
     Dates: start: 20180206
  18. ONDANSETRON [Concomitant]
     Active Substance: ONDANSETRON
     Indication: PROPHYLAXIS
     Dosage: 8 MG, UNK
     Route: 041
     Dates: start: 20171101, end: 20190323
  19. DL-ALPHA TOCOPHERYL ACETATE [Concomitant]
     Active Substance: .ALPHA.-TOCOPHEROL ACETATE, DL-
     Indication: PROPHYLAXIS
     Dosage: 300 MG, QD
     Route: 048
     Dates: start: 20171201
  20. DEXAMETHASONE. [Concomitant]
     Active Substance: DEXAMETHASONE
     Indication: PROPHYLAXIS
     Dosage: 8 MG
     Route: 041
     Dates: start: 20171101, end: 20180323
  21. CAFFEINE/PARACETAMOL/PROPYPHENAZONE [Concomitant]
     Active Substance: ACETAMINOPHEN\CAFFEINE\PROPYPHENAZONE
     Dosage: 40 GTT, QD
     Route: 048
     Dates: start: 20180131, end: 20180206
  22. SELENIUM [Concomitant]
     Active Substance: SELENIUM
     Indication: SELENIUM DEFICIENCY
     Dosage: 500 UG, QD
     Route: 048
     Dates: start: 20171023
  23. CIPROFLOXACIN. [Concomitant]
     Active Substance: CIPROFLOXACIN
     Indication: PNEUMONIA
     Dosage: UNK
     Route: 048
     Dates: start: 20171024, end: 20171102
  24. ARGININE ASPARTATE [Concomitant]
     Active Substance: ARGININE ASPARTATE
     Indication: CLOSTRIDIUM DIFFICILE COLITIS
     Dosage: 1 DF, QD (1 DOSAGE FORMS)
     Route: 048
     Dates: start: 20171115, end: 20171208
  25. PREGABALIN. [Concomitant]
     Active Substance: PREGABALIN
     Indication: PERIPHERAL SENSORY NEUROPATHY
     Dosage: 300 MG, QD
     Route: 048
     Dates: start: 20180323
  26. GLYCOPYRRONIUM BROMIDE [Concomitant]
     Active Substance: GLYCOPYRRONIUM
     Indication: CHRONIC OBSTRUCTIVE PULMONARY DISEASE
     Dosage: 1 OT, QD
     Route: 055
     Dates: start: 20171011
  27. PACLITAXEL ALBUMIN [Suspect]
     Active Substance: PACLITAXEL
     Dosage: 100 MG/M2, QD
     Route: 041
     Dates: start: 2018, end: 20180323
  28. PACLITAXEL ALBUMIN [Suspect]
     Active Substance: PACLITAXEL
     Dosage: UNK
     Route: 041
  29. CAFFEINE/PARACETAMOL/PROPYPHENAZONE [Concomitant]
     Active Substance: ACETAMINOPHEN\CAFFEINE\PROPYPHENAZONE
     Indication: PAIN
     Dosage: 40 GTT, QD (40 DROPS)
     Route: 048
     Dates: start: 20180207
  30. SODIUM CHLORIDE. [Concomitant]
     Active Substance: SODIUM CHLORIDE
     Indication: PROPHYLAXIS
     Dosage: 1000 ML, UNK
     Route: 041
     Dates: start: 20171101
  31. TRIMIPRAMINE [Concomitant]
     Active Substance: TRIMIPRAMINE
     Indication: DEPRESSION
     Dosage: 150 MG, QH (3600 MILLIGRAM)
     Route: 048

REACTIONS (5)
  - Thrombocytopenia [Recovered/Resolved]
  - Leukopenia [Recovered/Resolved]
  - Vertigo [Not Recovered/Not Resolved]
  - Platelet count decreased [Recovered/Resolved]
  - Infection [Recovered/Resolved]

NARRATIVE: CASE EVENT DATE: 201803
